FAERS Safety Report 9116585 (Version 1)
Quarter: 2013Q1

REPORT INFORMATION
  Report Type: Spontaneous
  Country: US (occurrence: US)
  Receive Date: 20130225
  Receipt Date: 20130225
  Transmission Date: 20140127
  Serious: Yes (Hospitalization)
  Sender: FDA-Public Use
  Company Number: CHPA2013US003337

PATIENT
  Age: 89 Year
  Sex: Female

DRUGS (1)
  1. IBUPROFEN [Suspect]
     Dosage: UNK, UNK
     Route: 065

REACTIONS (10)
  - Renal haemorrhage [Recovered/Resolved]
  - Drug hypersensitivity [Unknown]
  - Abdominal discomfort [Recovering/Resolving]
  - Malaise [Recovering/Resolving]
  - Feeling abnormal [Recovering/Resolving]
  - Diarrhoea [Recovering/Resolving]
  - Local swelling [Recovering/Resolving]
  - Swelling [Recovering/Resolving]
  - Abdominal pain upper [Recovered/Resolved]
  - Nausea [Recovered/Resolved]
